FAERS Safety Report 6806701-X (Version None)
Quarter: 2010Q2

REPORT INFORMATION
  Report Type: 
  Country: None (occurrence: None)
  Receive Date: 20100629
  Receipt Date: 20080417
  Transmission Date: 20101027
  Serious: Yes (Other)
  Sender: FDA-Public Use
  Company Number: US-PFIZER INC-2008035677

PATIENT
  Sex: Male
  Weight: 106.6 kg

DRUGS (3)
  1. VIAGRA [Suspect]
     Indication: ERECTILE DYSFUNCTION
     Dosage: HALF OF 100MG TABLET
  2. ALCOHOL [Suspect]
     Indication: ILL-DEFINED DISORDER
     Dosage: EVERY DAY
  3. VICODIN [Concomitant]

REACTIONS (4)
  - ERYTHEMA [None]
  - FLUSHING [None]
  - MUSCLE SPASMS [None]
  - VISION BLURRED [None]
